FAERS Safety Report 5051282-7 (Version None)
Quarter: 2006Q3

REPORT INFORMATION
  Report Type: 
  Country: None (occurrence: None)
  Receive Date: 20060714
  Receipt Date: 20060518
  Transmission Date: 20061208
  Serious: Yes (Death)
  Sender: FDA-Public Use
  Company Number: FR-AVENTIS-200611818FR

PATIENT
  Age: 42 Year
  Sex: Male

DRUGS (11)
  1. TOPALGIC [Suspect]
     Indication: PAIN
     Route: 042
     Dates: start: 20060410, end: 20060411
  2. PROFENID [Suspect]
     Route: 042
     Dates: start: 20060410, end: 20060411
  3. LOVENOX [Suspect]
     Route: 058
     Dates: start: 20060410, end: 20060411
  4. ACUPAN [Suspect]
     Indication: PAIN
     Route: 042
     Dates: start: 20060410, end: 20060411
  5. MOPRAL [Suspect]
     Route: 042
     Dates: start: 20060410, end: 20060411
  6. ACETAMINOPHEN [Suspect]
     Indication: PAIN
     Route: 042
     Dates: start: 20060410, end: 20060411
  7. MORPHINE SULFATE [Concomitant]
     Indication: PAIN
     Route: 048
     Dates: start: 20060411
  8. MYOLASTAN [Concomitant]
     Route: 048
     Dates: start: 20060412
  9. TRANXENE [Concomitant]
     Indication: DRUG WITHDRAWAL SYNDROME
     Dates: start: 20060412
  10. VITAMIN B1 AND B6 [Concomitant]
     Indication: DRUG WITHDRAWAL SYNDROME
     Dates: start: 20060412
  11. NICOTINE [Concomitant]
     Indication: DRUG WITHDRAWAL SYNDROME
     Route: 062
     Dates: start: 20060412

REACTIONS (8)
  - CELLULITIS [None]
  - DRUG WITHDRAWAL SYNDROME [None]
  - ECCHYMOSIS [None]
  - MYOSITIS [None]
  - NECROTISING FASCIITIS [None]
  - RECTAL HAEMORRHAGE [None]
  - RENAL FAILURE [None]
  - TENDON RUPTURE [None]
